FAERS Safety Report 10379386 (Version 3)
Quarter: 2014Q3

REPORT INFORMATION
  Report Type: Spontaneous
  Country: JP (occurrence: JP)
  Receive Date: 20140812
  Receipt Date: 20140813
  Transmission Date: 20150326
  Serious: Yes (Other)
  Sender: FDA-Public Use
  Company Number: JP-PFIZER INC-2014154517

PATIENT
  Age: 70 Year
  Sex: Male
  Weight: 56.6 kg

DRUGS (4)
  1. CHAMPIX [Suspect]
     Active Substance: VARENICLINE TARTRATE
     Dosage: 0.5 MG, 1X/DAY
     Route: 048
     Dates: start: 20140603, end: 20140604
  2. EXCEGRAN [Concomitant]
     Active Substance: ZONISAMIDE
     Indication: EPILEPSY
     Dosage: 100 MG, 2X/DAY
     Route: 048
     Dates: start: 20140514, end: 20140603
  3. EXCEGRAN [Concomitant]
     Active Substance: ZONISAMIDE
     Dosage: 200 MG, 2X/DAY
     Route: 048
     Dates: start: 20140604, end: 20140606
  4. EXCEGRAN [Concomitant]
     Active Substance: ZONISAMIDE
     Dosage: 100 MG, 3X/DAY
     Route: 048
     Dates: start: 20140607

REACTIONS (2)
  - Complex partial seizures [Unknown]
  - Epilepsy [Unknown]

NARRATIVE: CASE EVENT DATE: 20140604
